FAERS Safety Report 19688965 (Version 2)
Quarter: 2021Q3

REPORT INFORMATION
  Report Type: Spontaneous
  Country: RO (occurrence: RO)
  Receive Date: 20210812
  Receipt Date: 20210827
  Transmission Date: 20211014
  Serious: Yes (Other)
  Sender: FDA-Public Use
  Company Number: RO-SUN PHARMACEUTICAL INDUSTRIES LTD-2021RR-307645

PATIENT
  Age: 71 Year
  Sex: Female

DRUGS (2)
  1. KLABAX [Suspect]
     Active Substance: CLARITHROMYCIN
     Indication: DRUG PROVOCATION TEST
     Dosage: UNK
     Route: 065
  2. CLARITHROMYCIN. [Suspect]
     Active Substance: CLARITHROMYCIN
     Indication: ATYPICAL PNEUMONIA
     Dosage: 1000 MILLIGRAM, DAILY, DIVIDED IN TWO DOSES
     Route: 048

REACTIONS (2)
  - Symmetrical drug-related intertriginous and flexural exanthema [Recovered/Resolved]
  - Diarrhoea [Unknown]
